FAERS Safety Report 8990993 (Version 1)
Quarter: 2012Q4

REPORT INFORMATION
  Report Type: Spontaneous
  Country: US (occurrence: None)
  Receive Date: 20121227
  Receipt Date: 20121227
  Transmission Date: 20130627
  Serious: Yes (Hospitalization, Other)
  Sender: FDA-Public Use
  Company Number: None

PATIENT
  Age: 87 Year
  Sex: Female
  Weight: 82 kg

DRUGS (2)
  1. PRAMIPEXOLE [Suspect]
     Indication: RESTLESS LEG SYNDROME
     Dosage: 1.5 mg bid po
     Route: 048
     Dates: start: 20111101, end: 20121121
  2. MIRAPEX [Concomitant]

REACTIONS (12)
  - Fall [None]
  - Head injury [None]
  - Joint injury [None]
  - Atrial fibrillation [None]
  - Cardiac failure [None]
  - Syncope [None]
  - Contusion [None]
  - Contusion [None]
  - Hypotension [None]
  - Loss of consciousness [None]
  - Respiratory distress [None]
  - Soft tissue injury [None]
